FAERS Safety Report 7900254-0 (Version None)
Quarter: 2011Q4

REPORT INFORMATION
  Report Type: 
  Country: None (occurrence: None)
  Receive Date: 20111108
  Receipt Date: 20111027
  Transmission Date: 20120403
  Serious: Yes (Other)
  Sender: FDA-Public Use
  Company Number: ID-JNJFOC-20111100130

PATIENT
  Age: 41 Year
  Sex: Female

DRUGS (2)
  1. IBUPROFEN [Suspect]
     Indication: PHARYNGITIS
     Route: 048
  2. ZITHROMAX [Suspect]
     Indication: PHARYNGITIS
     Route: 048

REACTIONS (2)
  - DYSPNOEA [None]
  - EYE OEDEMA [None]
